FAERS Safety Report 22892834 (Version 5)
Quarter: 2023Q4

REPORT INFORMATION
  Report Type: Report from Study
  Country: BR (occurrence: BR)
  Receive Date: 20230901
  Receipt Date: 20231221
  Transmission Date: 20240109
  Serious: Yes (Other)
  Sender: FDA-Public Use
  Company Number: BR-AMGEN-BRASL2023110270

PATIENT
  Age: 64 Year
  Sex: Male

DRUGS (6)
  1. VECTIBIX [Suspect]
     Active Substance: PANITUMUMAB
     Indication: Colorectal cancer metastatic
     Dosage: UNK, Q2WK, INFUSION
     Route: 042
     Dates: start: 20230301
  2. VECTIBIX [Suspect]
     Active Substance: PANITUMUMAB
     Dosage: UNK, EVERY 15 DAYS, INFUSION CATHETER
     Route: 042
     Dates: start: 202306
  3. LOSARTAN [Concomitant]
     Active Substance: LOSARTAN
     Dosage: 50 MILLIGRAM, BID 1 TABLET IN THE MORNING AND 1 TABLET IN THE EVENING
     Route: 065
  4. LOSARTAN [Concomitant]
     Active Substance: LOSARTAN
     Dosage: 10 MILLIGRAM, BID 1 TABLET IN THE MORNING AND 1 TABLET AT NIGHT
     Route: 065
  5. SERTRALINE [Concomitant]
     Active Substance: SERTRALINE HYDROCHLORIDE
     Dosage: 30 MILLIGRAM, QD HALF A TABLET AT NIGHT
     Route: 065
  6. RIVOTRIL [Concomitant]
     Active Substance: CLONAZEPAM
     Dosage: UNK UNK, QD MID-NIGHT
     Route: 065

REACTIONS (12)
  - Hepatic neoplasm [Recovering/Resolving]
  - Skin burning sensation [Recovering/Resolving]
  - Skin haemorrhage [Recovering/Resolving]
  - Pain in extremity [Recovering/Resolving]
  - Hypersensitivity [Recovering/Resolving]
  - Acne [Recovering/Resolving]
  - Erythema [Not Recovered/Not Resolved]
  - Rash [Recovering/Resolving]
  - Paronychia [Recovering/Resolving]
  - Dry skin [Recovering/Resolving]
  - Wound [Not Recovered/Not Resolved]
  - Hypoaesthesia [Recovering/Resolving]

NARRATIVE: CASE EVENT DATE: 20230101
